FAERS Safety Report 19123814 (Version 1)
Quarter: 2021Q2

REPORT INFORMATION
  Report Type: Spontaneous
  Country: US (occurrence: US)
  Receive Date: 20210413
  Receipt Date: 20210413
  Transmission Date: 20210717
  Serious: Yes (Hospitalization)
  Sender: FDA-Public Use
  Company Number: US-ABBVIE-21K-163-3803979-00

PATIENT
  Age: 43 Year
  Sex: Female

DRUGS (18)
  1. NORVASC [Suspect]
     Active Substance: AMLODIPINE BESYLATE
     Indication: PAIN
     Route: 065
  2. KETOROLAC TROMETAMINE [Suspect]
     Active Substance: KETOROLAC TROMETHAMINE
     Indication: PRODUCT USED FOR UNKNOWN INDICATION
     Route: 065
  3. NORVASC [Suspect]
     Active Substance: AMLODIPINE BESYLATE
     Indication: STAPHYLOCOCCAL INFECTION
  4. HYDRODIURIL [Suspect]
     Active Substance: HYDROCHLOROTHIAZIDE
     Indication: STAPHYLOCOCCAL INFECTION
     Route: 065
  5. DOXYCYCLINE HYCLATE. [Suspect]
     Active Substance: DOXYCYCLINE HYCLATE
     Indication: PRODUCT USED FOR UNKNOWN INDICATION
     Route: 065
  6. VICODIN [Suspect]
     Active Substance: ACETAMINOPHEN\HYDROCODONE BITARTRATE
     Indication: PAIN
     Route: 048
  7. ZESTRIL [Suspect]
     Active Substance: LISINOPRIL
     Indication: PAIN
  8. HYDRODIURIL [Suspect]
     Active Substance: HYDROCHLOROTHIAZIDE
     Indication: PAIN
  9. CEFTRIAXONE. [Suspect]
     Active Substance: CEFTRIAXONE
     Indication: PRODUCT USED FOR UNKNOWN INDICATION
     Route: 065
  10. CEFTAROLINE [Suspect]
     Active Substance: CEFTAROLINE
     Indication: PRODUCT USED FOR UNKNOWN INDICATION
     Route: 065
  11. PRINIVIL [Suspect]
     Active Substance: LISINOPRIL
     Indication: STAPHYLOCOCCAL INFECTION
     Route: 065
  12. VANCOCIN [Suspect]
     Active Substance: VANCOMYCIN HYDROCHLORIDE
     Indication: STAPHYLOCOCCAL INFECTION
     Route: 065
  13. PRINIVIL [Suspect]
     Active Substance: LISINOPRIL
     Indication: PAIN
  14. METHYLPREDNISOLONE. [Suspect]
     Active Substance: METHYLPREDNISOLONE
     Indication: PRODUCT USED FOR UNKNOWN INDICATION
     Route: 065
  15. DAPTOMYCIN. [Suspect]
     Active Substance: DAPTOMYCIN
     Indication: PRODUCT USED FOR UNKNOWN INDICATION
     Route: 065
  16. VICODIN [Suspect]
     Active Substance: ACETAMINOPHEN\HYDROCODONE BITARTRATE
     Indication: STAPHYLOCOCCAL INFECTION
  17. VANCOCIN [Suspect]
     Active Substance: VANCOMYCIN HYDROCHLORIDE
     Indication: PAIN
  18. ZESTRIL [Suspect]
     Active Substance: LISINOPRIL
     Indication: STAPHYLOCOCCAL INFECTION
     Route: 065

REACTIONS (13)
  - Blood creatinine increased [Unknown]
  - Osteomyelitis [Unknown]
  - Inflammatory marker increased [Unknown]
  - Intervertebral discitis [Unknown]
  - Back pain [Unknown]
  - Atrophy [Unknown]
  - Pyrexia [Unknown]
  - Osteonecrosis [Unknown]
  - Arteriosclerosis [Unknown]
  - Asymptomatic bacteriuria [Unknown]
  - Spinal stenosis [Unknown]
  - Tubulointerstitial nephritis [Unknown]
  - Fibrosis [Unknown]
